FAERS Safety Report 20336758 (Version 2)
Quarter: 2022Q4

REPORT INFORMATION
  Report Type: Spontaneous
  Country: None (occurrence: GB)
  Receive Date: 20220114
  Receipt Date: 20221022
  Transmission Date: 20230112
  Serious: Yes (Death, Life-Threatening, Hospitalization, Disabling, Other)
  Sender: FDA-Public Use
  Company Number: GB-B.Braun Medical Inc.-2123939

PATIENT
  Age: 76 Year
  Sex: Male
  Weight: 69 kg

DRUGS (23)
  1. CEFUROXIME SODIUM [Suspect]
     Active Substance: CEFUROXIME SODIUM
  2. ALLOPURINOL [Concomitant]
     Active Substance: ALLOPURINOL
  3. BETAHISTINE [Concomitant]
     Active Substance: BETAHISTINE
  4. CHOLECALCIFEROL [Concomitant]
     Active Substance: CHOLECALCIFEROL
  5. DEXTROSE [Suspect]
     Active Substance: DEXTROSE
  6. EPLERENONE [Concomitant]
     Active Substance: EPLERENONE
  7. FUROSEMIDE [Concomitant]
     Active Substance: FUROSEMIDE
  8. GLICLAZIDE [Concomitant]
     Active Substance: GLICLAZIDE
  9. GLUCAGON [Concomitant]
     Active Substance: GLUCAGON
  10. PREDNISOLONE [Concomitant]
     Active Substance: PREDNISOLONE
  11. ALBUTEROL [Concomitant]
     Active Substance: ALBUTEROL
  12. SENNA [Concomitant]
     Active Substance: SENNA LEAF\SENNOSIDES\SENNOSIDES A AND B
  13. ALFACALCIDOL [Suspect]
     Active Substance: ALFACALCIDOL
  14. DOXYCYCLINE [Suspect]
     Active Substance: DOXYCYCLINE
  15. ENVARSUS XR [Suspect]
     Active Substance: TACROLIMUS
  16. HYDROCORTISONE ACETATE [Suspect]
     Active Substance: HYDROCORTISONE ACETATE
  17. OMEPRAZOLE [Suspect]
     Active Substance: OMEPRAZOLE
  18. CLARITHROMYCIN [Suspect]
     Active Substance: CLARITHROMYCIN
  19. TACROLIMUS [Suspect]
     Active Substance: TACROLIMUS
  20. BISOPROLOL. [Suspect]
     Active Substance: BISOPROLOL FUMARATE
  21. NITROGLYCERIN [Suspect]
     Active Substance: NITROGLYCERIN
  22. SENNOSIDES A AND B [Suspect]
     Active Substance: SENNOSIDES A AND B
  23. CALCIUM CARBONATE [Concomitant]
     Active Substance: CALCIUM CARBONATE

REACTIONS (36)
  - Oesophageal carcinoma [Fatal]
  - Myocardial ischaemia [Fatal]
  - Drug interaction [Fatal]
  - Acute kidney injury [Fatal]
  - Cardiac failure congestive [Fatal]
  - Pneumonia [Fatal]
  - Dysphagia [None]
  - Rales [None]
  - Toxicity to various agents [None]
  - Drug interaction [None]
  - Immunosuppressant drug level increased [None]
  - Drug level increased [None]
  - Pyrexia [None]
  - Transplant failure [None]
  - Dyspnoea [None]
  - Sepsis [None]
  - Inflammatory marker increased [None]
  - Labelled drug-drug interaction medication error [None]
  - Hypoglycaemia [None]
  - Superinfection [None]
  - Swelling [None]
  - Cardiomegaly [None]
  - Oesophageal perforation [None]
  - Renal impairment [None]
  - Renal impairment [None]
  - Pleural effusion [None]
  - Lung consolidation [None]
  - Multimorbidity [Fatal]
  - Soft tissue mass [None]
  - Malaise [None]
  - Cardiac failure congestive [None]
  - Myocardial ischaemia [None]
  - Ascites [None]
  - Lower respiratory tract infection [None]
  - Haemoptysis [None]
  - Oesophageal perforation [None]
